FAERS Safety Report 7366002-0 (Version None)
Quarter: 2011Q1

REPORT INFORMATION
  Report Type: 
  Country: None (occurrence: None)
  Receive Date: 20110322
  Receipt Date: 20110308
  Transmission Date: 20110831
  Serious: Yes (Other)
  Sender: FDA-Public Use
  Company Number: US-MYLANLABS-2011S1004856

PATIENT
  Age: 56 Year
  Sex: Male

DRUGS (2)
  1. WARFARIN [Concomitant]
     Indication: ANTICOAGULANT THERAPY
     Route: 065
  2. MERCAPTOPURINE [Suspect]
     Indication: CROHN'S DISEASE
     Route: 065
     Dates: start: 20020101, end: 20081201

REACTIONS (3)
  - NODULAR REGENERATIVE HYPERPLASIA [None]
  - THROMBOCYTOPENIA [None]
  - PORTAL HYPERTENSION [None]
